FAERS Safety Report 5163276-1 (Version None)
Quarter: 2006Q4

REPORT INFORMATION
  Report Type: 
  Country: None (occurrence: None)
  Receive Date: 20061204
  Receipt Date: 20060928
  Transmission Date: 20070319
  Serious: Yes (Death, Life-Threatening, Hospitalization)
  Sender: FDA-Public Use
  Company Number: PHBS2006JP15234

PATIENT
  Age: 74 Year
  Sex: Male

DRUGS (6)
  1. LASIX [Suspect]
     Dosage: 20 MG/DAY
     Route: 048
     Dates: start: 20060719, end: 20060829
  2. DIGOXIN [Suspect]
     Dosage: 0.25 MG/DAY
     Route: 048
     Dates: start: 20060719, end: 20060829
  3. ALDACTONE [Suspect]
     Dosage: 25 MG/DAY
     Route: 048
     Dates: start: 20060719, end: 20060829
  4. DIOVAN [Suspect]
     Indication: CARDIAC FAILURE
     Dosage: 80 MG/DAY
     Route: 048
     Dates: start: 20060721, end: 20060829
  5. AIDEITO [Suspect]
     Indication: HYPERURICAEMIA
     Dosage: 2 DF/DAY
     Route: 048
     Dates: start: 20060721, end: 20060829
  6. ASPIRIN [Suspect]
     Dosage: 1DF/DAY
     Route: 048
     Dates: start: 20060719, end: 20060829

REACTIONS (23)
  - ALANINE AMINOTRANSFERASE INCREASED [None]
  - ASPARTATE AMINOTRANSFERASE INCREASED [None]
  - BLOOD ALKALINE PHOSPHATASE INCREASED [None]
  - BLOOD CREATININE INCREASED [None]
  - BLOOD GLUCOSE INCREASED [None]
  - BLOOD LACTATE DEHYDROGENASE INCREASED [None]
  - BLOOD POTASSIUM INCREASED [None]
  - BLOOD SODIUM DECREASED [None]
  - BLOOD UREA INCREASED [None]
  - C-REACTIVE PROTEIN INCREASED [None]
  - CARDIO-RESPIRATORY ARREST [None]
  - CONDITION AGGRAVATED [None]
  - DERMATITIS EXFOLIATIVE [None]
  - EOSINOPHIL COUNT INCREASED [None]
  - GAMMA-GLUTAMYLTRANSFERASE INCREASED [None]
  - GENERALISED ERYTHEMA [None]
  - HAEMOPTYSIS [None]
  - LYMPHOCYTE COUNT DECREASED [None]
  - PYREXIA [None]
  - RASH [None]
  - RENAL FAILURE [None]
  - RESPIRATORY FAILURE [None]
  - WHITE BLOOD CELL COUNT INCREASED [None]
